FAERS Safety Report 9246829 (Version 1)
Quarter: 2013Q2

REPORT INFORMATION
  Report Type: Spontaneous
  Country: IT (occurrence: IT)
  Receive Date: 20130422
  Receipt Date: 20130422
  Transmission Date: 20140414
  Serious: Yes (Other)
  Sender: FDA-Public Use
  Company Number: IT-GILEAD-2013-0073757

PATIENT
  Age: 82 Year
  Sex: Female

DRUGS (12)
  1. RANOLAZINE [Suspect]
     Indication: ANGINA PECTORIS
     Dosage: 375 MG, QD
     Route: 048
     Dates: start: 20130101
  2. LOSARTAN POTASSIUM [Concomitant]
     Indication: HYPERTENSION
     Route: 048
  3. PLAVIX [Concomitant]
     Indication: CORONARY ARTERY DISEASE
     Route: 048
  4. LUVION                             /00252501/ [Concomitant]
     Indication: HYPERTENSION
     Route: 048
  5. LASIX                              /00032601/ [Concomitant]
     Indication: HYPERTENSION
     Route: 048
  6. HUMALOG [Concomitant]
     Indication: DIABETES MELLITUS
     Route: 058
  7. ZYLORIC [Concomitant]
     Indication: GOUT
     Route: 048
  8. TOTALIP [Concomitant]
     Indication: DYSLIPIDAEMIA
     Route: 048
  9. EUTIROX [Concomitant]
     Indication: HYPOTHYROIDISM
     Route: 048
  10. SPIRIVA [Concomitant]
     Indication: CHRONIC OBSTRUCTIVE PULMONARY DISEASE
     Route: 045
  11. CARDIOASPIRIN [Concomitant]
     Indication: CORONARY ARTERY DISEASE
     Route: 048
  12. DILATREND [Concomitant]
     Indication: HYPERTENSION
     Route: 048

REACTIONS (2)
  - Skin burning sensation [Recovering/Resolving]
  - Headache [Recovering/Resolving]
